FAERS Safety Report 9341161 (Version 1)
Quarter: 2013Q2

REPORT INFORMATION
  Report Type: Spontaneous
  Country: FR (occurrence: FR)
  Receive Date: 20130611
  Receipt Date: 20130611
  Transmission Date: 20140414
  Serious: Yes (Hospitalization)
  Sender: FDA-Public Use
  Company Number: FR-ROCHE-1234346

PATIENT
  Age: 62 Year
  Sex: Male

DRUGS (5)
  1. ROCEPHINE [Suspect]
     Indication: ENDOCARDITIS
     Route: 065
     Dates: start: 20120312, end: 20120507
  2. VANCOMYCINE [Suspect]
     Indication: ENDOCARDITIS
     Route: 042
     Dates: start: 20120312, end: 20120507
  3. GENTAMYCIN [Suspect]
     Indication: ENDOCARDITIS
     Route: 042
     Dates: start: 20120217, end: 20120412
  4. AUGMENTIN [Concomitant]
     Route: 065
  5. AMOXICILLIN [Concomitant]
     Route: 065

REACTIONS (1)
  - Renal failure acute [Recovered/Resolved]
